FAERS Safety Report 20146005 (Version 1)
Quarter: 2021Q4

REPORT INFORMATION
  Report Type: Spontaneous
  Country: US (occurrence: None)
  Receive Date: 20211203
  Receipt Date: 20211203
  Transmission Date: 20220303
  Serious: No
  Sender: FDA-Public Use
  Company Number: 2021A832208

PATIENT
  Sex: Female
  Weight: 113.4 kg

DRUGS (1)
  1. SYMBICORT [Suspect]
     Active Substance: BUDESONIDE\FORMOTEROL FUMARATE DIHYDRATE
     Indication: Chronic obstructive pulmonary disease
     Dosage: 160/4.5 MG, 2 PUFFS, AM AND PM, TWO TIMES A DAY
     Route: 055
     Dates: start: 2021

REACTIONS (2)
  - Visual impairment [Unknown]
  - Rhinorrhoea [Unknown]
